FAERS Safety Report 24535441 (Version 1)
Quarter: 2024Q4

REPORT INFORMATION
  Report Type: Spontaneous
  Country: US (occurrence: None)
  Receive Date: 20241022
  Receipt Date: 20241022
  Transmission Date: 20250114
  Serious: Yes (Life-Threatening, Other)
  Sender: Public
  Company Number: None

PATIENT
  Age: 46 Year
  Sex: Female
  Weight: 99 kg

DRUGS (17)
  1. HUMIRA [Suspect]
     Active Substance: ADALIMUMAB
     Indication: Ankylosing spondylitis
     Dosage: OTHER QUANTITY : 1 INJECTION(S);?OTHER FREQUENCY : EVERY TWO WEEKS;?
     Route: 030
     Dates: start: 20221129, end: 20221227
  2. HUMIRA [Suspect]
     Active Substance: ADALIMUMAB
     Indication: Colitis ulcerative
  3. DEXAMETHASONE [Suspect]
     Active Substance: DEXAMETHASONE
  4. CIMZIA [Concomitant]
     Active Substance: CERTOLIZUMAB PEGOL
  5. PREGABALIN [Concomitant]
     Active Substance: PREGABALIN
  6. ADZENYS ER [Concomitant]
     Active Substance: AMPHETAMINE
  7. PRN [Concomitant]
  8. Steroid ear drops [Concomitant]
  9. ALBUTEROL [Concomitant]
     Active Substance: ALBUTEROL
  10. nebulizer for asthma [Concomitant]
  11. wheelchair walker cane [Concomitant]
  12. ZYRTEC [Concomitant]
     Active Substance: CETIRIZINE HYDROCHLORIDE
  13. FLONASE [Concomitant]
     Active Substance: FLUTICASONE PROPIONATE
  14. b12 liquid [Concomitant]
  15. VITAMIN D3 [Concomitant]
     Active Substance: CHOLECALCIFEROL
  16. k2 liquid [Concomitant]
  17. IRON [Concomitant]
     Active Substance: IRON

REACTIONS (8)
  - Rash [None]
  - Peripheral swelling [None]
  - Swelling [None]
  - Swelling face [None]
  - Swelling [None]
  - Dyspnoea [None]
  - Cushing^s syndrome [None]
  - Glycosylated haemoglobin increased [None]

NARRATIVE: CASE EVENT DATE: 20221227
